FAERS Safety Report 18414601 (Version 4)
Quarter: 2025Q1

REPORT INFORMATION
  Report Type: Spontaneous
  Country: JP (occurrence: JP)
  Receive Date: 20201022
  Receipt Date: 20250117
  Transmission Date: 20250409
  Serious: Yes (Other)
  Sender: SUNOVION
  Company Number: JP-SUNOVION-2020DSP013072

PATIENT

DRUGS (12)
  1. LATUDA [Suspect]
     Active Substance: LURASIDONE HYDROCHLORIDE
     Indication: Schizophrenia
     Dosage: 40 MG, QD
     Route: 048
     Dates: start: 20200612, end: 20200614
  2. LATUDA [Suspect]
     Active Substance: LURASIDONE HYDROCHLORIDE
     Dosage: 80 MG, QD
     Route: 048
     Dates: start: 20200715
  3. BLONANSERIN [Suspect]
     Active Substance: BLONANSERIN
     Indication: Schizophrenia
     Dosage: 80 MG, QD
     Route: 062
     Dates: start: 20200614
  4. Actit [Concomitant]
     Indication: Dehydration
     Dosage: 500 ML, TID
     Route: 041
     Dates: start: 20200612, end: 20200626
  5. CYANOCOBALAMIN\PYRIDOXINE HYDROCHLORIDE\THIAMINE [Concomitant]
     Active Substance: CYANOCOBALAMIN\PYRIDOXINE HYDROCHLORIDE\THIAMINE
     Indication: Nutritional supplementation
     Dosage: UNK, QD
     Route: 041
     Dates: start: 20200612, end: 20200626
  6. ASCORBIC ACID [Concomitant]
     Active Substance: ASCORBIC ACID
     Indication: Nutritional supplementation
     Dosage: 1000 MG, QD
     Route: 041
     Dates: start: 20200612, end: 20200626
  7. CALCIUM CHLORIDE\POTASSIUM CHLORIDE\SODIUM CHLORIDE\SODIUM LACTATE\SOR [Concomitant]
     Active Substance: CALCIUM CHLORIDE\POTASSIUM CHLORIDE\SODIUM CHLORIDE\SODIUM LACTATE\SORBITOL
     Indication: Dehydration
     Dosage: 500 ML, QD
     Route: 041
     Dates: start: 20200612, end: 20200626
  8. ZOPICLONE [Concomitant]
     Active Substance: ZOPICLONE
     Indication: Schizophrenia
     Dosage: 10 MG, BIW
     Route: 048
     Dates: start: 20200613
  9. ANHIBA [Concomitant]
     Active Substance: ACETAMINOPHEN
     Indication: Upper respiratory tract inflammation
     Dosage: 200 MG, SINGLE
     Route: 054
     Dates: start: 20200621, end: 20200621
  10. LEVOFLOXACIN [Concomitant]
     Active Substance: LEVOFLOXACIN
     Indication: Keratitis
     Route: 047
     Dates: start: 20200623
  11. LIDOCAINE\TRIBENOSIDE [Concomitant]
     Active Substance: LIDOCAINE\TRIBENOSIDE
     Indication: Haemorrhoids
     Route: 003
     Dates: start: 20200625
  12. AMITIZA [Concomitant]
     Active Substance: LUBIPROSTONE
     Indication: Constipation
     Dosage: 24 ?G, BID
     Route: 048
     Dates: start: 20200706

REACTIONS (2)
  - Urinary retention [Recovered/Resolved]
  - Constipation [Not Recovered/Not Resolved]

NARRATIVE: CASE EVENT DATE: 20200705
